FAERS Safety Report 9016046 (Version 1)
Quarter: 2013Q1

REPORT INFORMATION
  Report Type: Spontaneous
  Country: US (occurrence: US)
  Receive Date: 20130116
  Receipt Date: 20130116
  Transmission Date: 20140127
  Serious: Yes (Other)
  Sender: FDA-Public Use
  Company Number: CHPA2013US000808

PATIENT
  Age: 76 Year
  Sex: Female

DRUGS (1)
  1. KERI ORIGINAL [Suspect]
     Indication: DRY SKIN PROPHYLAXIS
     Dosage: UNK, NIGHTLY
     Route: 061

REACTIONS (2)
  - Asthma [Recovered/Resolved]
  - Dementia [Not Recovered/Not Resolved]
